FAERS Safety Report 6014606-X (Version None)
Quarter: 2008Q4

REPORT INFORMATION
  Report Type: 
  Country: None (occurrence: None)
  Receive Date: 20081219
  Receipt Date: 20080915
  Transmission Date: 20090506
  Serious: No
  Sender: FDA-Public Use
  Company Number: A0747474A

PATIENT
  Age: 76 Year
  Sex: Male

DRUGS (7)
  1. AVODART [Suspect]
     Indication: BENIGN PROSTATIC HYPERPLASIA
     Dosage: 1TAB PER DAY
     Route: 048
     Dates: start: 20080801
  2. WATER PILL [Concomitant]
  3. PROSCAR [Concomitant]
  4. CORTRIL [Concomitant]
  5. FLOMAX [Concomitant]
  6. FUROSEMIDE [Concomitant]
  7. UNKNOWN MEDICATION [Concomitant]

REACTIONS (4)
  - BREAST ENLARGEMENT [None]
  - LIBIDO DECREASED [None]
  - POLLAKIURIA [None]
  - WEIGHT INCREASED [None]
